FAERS Safety Report 22926903 (Version 2)
Quarter: 2023Q4

REPORT INFORMATION
  Report Type: Spontaneous
  Country: US (occurrence: US)
  Receive Date: 20230911
  Receipt Date: 20231124
  Transmission Date: 20240110
  Serious: No
  Sender: FDA-Public Use
  Company Number: US-BoehringerIngelheim-2023-BI-259645

PATIENT
  Sex: Male

DRUGS (1)
  1. SPIRIVA [Suspect]
     Active Substance: TIOTROPIUM BROMIDE MONOHYDRATE
     Indication: Product used for unknown indication
     Route: 055

REACTIONS (4)
  - Respiratory tract congestion [Not Recovered/Not Resolved]
  - COVID-19 [Not Recovered/Not Resolved]
  - Dyspnoea [Not Recovered/Not Resolved]
  - Oropharyngeal pain [Not Recovered/Not Resolved]
